FAERS Safety Report 5474112-8 (Version None)
Quarter: 2007Q3

REPORT INFORMATION
  Report Type: 
  Country: None (occurrence: None)
  Receive Date: 20070927
  Receipt Date: 20070927
  Transmission Date: 20080115
  Serious: Yes (Life-Threatening, Disabling, Other)
  Sender: FDA-Public Use
  Company Number: None

PATIENT
  Sex: Male
  Weight: 88.4514 kg

DRUGS (1)
  1. REQUIP [Suspect]
     Indication: RESTLESS LEGS SYNDROME
     Dosage: ONE ONCE DAILY PO
     Route: 048
     Dates: start: 20020903, end: 20070710

REACTIONS (6)
  - ALCOHOL USE [None]
  - COMPULSIONS [None]
  - FALL [None]
  - GAMBLING [None]
  - SMOKER [None]
  - SOMNOLENCE [None]
